FAERS Safety Report 16642885 (Version 1)
Quarter: 2019Q3

REPORT INFORMATION
  Report Type: Spontaneous
  Country: IN (occurrence: IN)
  Receive Date: 20190729
  Receipt Date: 20190729
  Transmission Date: 20191004
  Serious: Yes (Other)
  Sender: FDA-Public Use
  Company Number: IN-PFIZER INC-2019318488

PATIENT
  Age: 71 Year
  Sex: Female

DRUGS (1)
  1. PALBACE [Suspect]
     Active Substance: PALBOCICLIB
     Indication: BREAST CANCER METASTATIC
     Dosage: 125 MG, 1X/DAY
     Route: 048
     Dates: start: 20180402

REACTIONS (7)
  - Hyperplasia adrenal [Unknown]
  - Pleural effusion [Unknown]
  - Hydronephrosis [Unknown]
  - Ascites [Unknown]
  - Neoplasm progression [Unknown]
  - Peritoneal disorder [Unknown]
  - Fat tissue increased [Unknown]

NARRATIVE: CASE EVENT DATE: 20180503
